FAERS Safety Report 9380550 (Version 1)
Quarter: 2013Q2

REPORT INFORMATION
  Report Type: Spontaneous
  Country: FR (occurrence: None)
  Receive Date: 20130628
  Receipt Date: 20130628
  Transmission Date: 20140414
  Serious: Yes (Other)
  Sender: FDA-Public Use
  Company Number: 2013P1009995

PATIENT
  Age: 67 Year
  Sex: Female

DRUGS (3)
  1. LAMOTRIGINE [Suspect]
     Indication: PARTIAL SEIZURES
  2. SODIUM PICOSULFATE [Suspect]
     Indication: BOWEL PREPARATION
  3. MACROGOL [Suspect]
     Indication: BOWEL PREPARATION

REACTIONS (2)
  - Drug interaction [None]
  - Partial seizures with secondary generalisation [None]
